FAERS Safety Report 24541388 (Version 1)
Quarter: 2024Q4

REPORT INFORMATION
  Report Type: Spontaneous
  Country: US (occurrence: US)
  Receive Date: 20241023
  Receipt Date: 20241023
  Transmission Date: 20250115
  Serious: Yes (Other)
  Sender: BRACCO
  Company Number: US-BRACCO-2023US05069

PATIENT
  Sex: Female

DRUGS (2)
  1. PROHANCE [Suspect]
     Active Substance: GADOTERIDOL
     Indication: Magnetic resonance imaging
     Dosage: 15 ML, SINGLE
     Route: 042
     Dates: start: 20230922, end: 20230922
  2. LISINOPRIL [Concomitant]
     Active Substance: LISINOPRIL
     Indication: Hypertension

REACTIONS (13)
  - Unresponsive to stimuli [Unknown]
  - Nausea [Unknown]
  - Hot flush [Unknown]
  - Retching [Unknown]
  - Lethargy [Unknown]
  - Fatigue [Unknown]
  - Presyncope [Unknown]
  - Anxiety [Unknown]
  - Dyskinesia [Unknown]
  - Dyspnoea [Unknown]
  - Confusional state [Unknown]
  - Productive cough [Unknown]
  - Dizziness [Unknown]

NARRATIVE: CASE EVENT DATE: 20230922
